FAERS Safety Report 17115716 (Version 6)
Quarter: 2020Q2

REPORT INFORMATION
  Report Type: Report from Study
  Country: CO (occurrence: CO)
  Receive Date: 20191205
  Receipt Date: 20200408
  Transmission Date: 20200713
  Serious: Yes (Hospitalization, Other)
  Sender: FDA-Public Use
  Company Number: NVSC2019CO056064

PATIENT
  Sex: Female
  Weight: 60 kg

DRUGS (3)
  1. KISQALI [Suspect]
     Active Substance: RIBOCICLIB
     Dosage: 400 MG, QD
     Route: 048
     Dates: start: 201910, end: 201912
  2. KISQALI [Suspect]
     Active Substance: RIBOCICLIB
     Indication: BREAST CANCER METASTATIC
     Dosage: 600 MG, QD
     Route: 048
     Dates: start: 201907, end: 201910
  3. FEMARA [Suspect]
     Active Substance: LETROZOLE
     Indication: BREAST CANCER
     Dosage: 2.5 MG, QD
     Route: 048
     Dates: start: 201907, end: 201912

REACTIONS (9)
  - Malignant neoplasm progression [Unknown]
  - Mobility decreased [Unknown]
  - Breast cancer metastatic [Unknown]
  - Drug ineffective [Unknown]
  - General physical health deterioration [Unknown]
  - Pleural effusion [Unknown]
  - Gait disturbance [Unknown]
  - Immunodeficiency [Unknown]
  - Choking [Unknown]
